FAERS Safety Report 5757480-9 (Version None)
Quarter: 2008Q2

REPORT INFORMATION
  Report Type: 
  Country: None (occurrence: None)
  Receive Date: 20080529
  Receipt Date: 20080514
  Transmission Date: 20081010
  Serious: Yes (Hospitalization, Other)
  Sender: FDA-Public Use
  Company Number: WAES 0802USC00013

PATIENT
  Age: 42 Year
  Sex: Female

DRUGS (2)
  1. TRIZIVIR [Suspect]
     Indication: HIV INFECTION
     Dosage: 1550 MG/DAILY
     Dates: start: 20030326, end: 20080211
  2. KALETRA [Suspect]
     Indication: HIV INFECTION
     Dosage: 1000 MG/DAILY
     Dates: start: 20070115, end: 20080211

REACTIONS (1)
  - FURUNCLE [None]
